FAERS Safety Report 17247524 (Version 4)
Quarter: 2020Q4

REPORT INFORMATION
  Report Type: Spontaneous
  Country: US (occurrence: US)
  Receive Date: 20200108
  Receipt Date: 20201201
  Transmission Date: 20210113
  Serious: No
  Sender: FDA-Public Use
  Company Number: US-PFIZER INC-2020007615

PATIENT
  Age: 61 Year
  Sex: Female
  Weight: 78.46 kg

DRUGS (5)
  1. DILANTIN [Suspect]
     Active Substance: PHENYTOIN
     Indication: SEIZURE
     Dosage: 200 MG, DAILY (100 MG, 2 CAPSULES DAILY)
     Route: 048
     Dates: start: 20200102
  2. KEPPRA [Concomitant]
     Active Substance: LEVETIRACETAM
     Indication: MUSCLE SPASMS
     Dosage: UNK
  3. DILANTIN [Suspect]
     Active Substance: PHENYTOIN
     Dosage: 50 MG, DAILY
     Route: 048
     Dates: start: 20200102
  4. DILANTIN [Suspect]
     Active Substance: PHENYTOIN
     Indication: SEIZURE
     Dosage: 1 DF, DAILY (1 TABLET, DAILY)
     Route: 048
  5. KEPPRA [Concomitant]
     Active Substance: LEVETIRACETAM
     Indication: DYSTONIA

REACTIONS (2)
  - Thyroid function test abnormal [Unknown]
  - Drug level abnormal [Unknown]
